FAERS Safety Report 5692861-3 (Version None)
Quarter: 2008Q2

REPORT INFORMATION
  Report Type: 
  Country: None (occurrence: None)
  Receive Date: 20080401
  Receipt Date: 20080315
  Transmission Date: 20081010
  Serious: Yes (Death, Hospitalization)
  Sender: FDA-Public Use
  Company Number: ADE2008-0165

PATIENT
  Age: 79 Year
  Sex: Female
  Weight: 63 kg

DRUGS (9)
  1. METFORMIN HCL [Suspect]
     Dosage: 500 MG -2X DAILY;PO
     Route: 048
     Dates: end: 20080212
  2. AMITRIPTYLINE HCL [Concomitant]
  3. AMLODIPINE BESYLATE [Concomitant]
  4. ENALAPRIL MALEATE [Concomitant]
  5. FUROSEMIDE [Concomitant]
  6. LANSOPRAZOLE [Concomitant]
  7. NOVOLOG MIX 70/30 [Concomitant]
  8. QUININE [Concomitant]
  9. SIMVASTATIN [Concomitant]

REACTIONS (3)
  - METABOLIC ACIDOSIS [None]
  - MULTI-ORGAN FAILURE [None]
  - PERIPHERAL ISCHAEMIA [None]
